FAERS Safety Report 16503046 (Version 1)
Quarter: 2019Q3

REPORT INFORMATION
  Report Type: Spontaneous
  Country: US (occurrence: US)
  Receive Date: 20190701
  Receipt Date: 20190701
  Transmission Date: 20191004
  Serious: No
  Sender: FDA-Public Use
  Company Number: US-BAYER-2019-123965

PATIENT
  Sex: Female

DRUGS (3)
  1. MIRALAX [Suspect]
     Active Substance: POLYETHYLENE GLYCOL 3350
     Indication: GASTROINTESTINAL DISORDER
     Dosage: 2 TEASPOONS DAILY
     Route: 048
     Dates: start: 2017
  2. PHILLIPS COLON HEALTH PROBIOTICS WITH METABOLISM SUPPORT [Concomitant]
     Active Substance: PROBIOTICS NOS
     Indication: GASTROINTESTINAL DISORDER
     Route: 048
  3. MULTIVITAMINS;MINERALS [Concomitant]

REACTIONS (2)
  - Incorrect dose administered [Unknown]
  - Constipation [None]
